FAERS Safety Report 7049212-1 (Version None)
Quarter: 2010Q4

REPORT INFORMATION
  Report Type: 
  Country: None (occurrence: None)
  Receive Date: 20101018
  Receipt Date: 20101011
  Transmission Date: 20110411
  Serious: Yes (Life-Threatening, Hospitalization)
  Sender: FDA-Public Use
  Company Number: US-ELI_LILLY_AND_COMPANY-US201005002403

PATIENT
  Sex: Male
  Weight: 69.1 kg

DRUGS (12)
  1. PEMETREXED [Suspect]
     Indication: NON-SMALL CELL LUNG CANCER
     Dosage: 500 MG/M2, OTHER
     Route: 042
     Dates: start: 20090324, end: 20090526
  2. PEMETREXED [Suspect]
     Dosage: 500 MG/M2, OTHER
     Route: 042
     Dates: start: 20090616, end: 20100429
  3. CARBOPLATIN [Suspect]
     Indication: NON-SMALL CELL LUNG CANCER
     Dosage: 6 D/F, OTHER
     Route: 042
     Dates: start: 20090324, end: 20090526
  4. BEVACIZUMAB [Suspect]
     Indication: NON-SMALL CELL LUNG CANCER
     Dosage: 15 MG/KG, OTHER
     Route: 042
     Dates: start: 20090324, end: 20090526
  5. BEVACIZUMAB [Suspect]
     Dosage: 15 MG/KG, OTHER
     Route: 042
     Dates: start: 20090616, end: 20100429
  6. FOLIC ACID [Concomitant]
     Indication: SUPPLEMENTATION THERAPY
     Dosage: UNK, UNK
     Dates: start: 20090313, end: 20100501
  7. GLIMEPIRIDE [Concomitant]
     Indication: DIABETES MELLITUS
     Dates: start: 20080707
  8. VITAMIN B-12 [Concomitant]
     Indication: SUPPLEMENTATION THERAPY
     Dates: start: 20090313, end: 20100501
  9. LOVASTATIN [Concomitant]
     Indication: BLOOD CHOLESTEROL
     Dates: start: 20090324
  10. ASPIRIN [Concomitant]
     Indication: CORONARY ARTERY DISEASE
     Dates: start: 20071018
  11. ACTOPLUS MET [Concomitant]
     Indication: DIABETES MELLITUS
     Dates: start: 20071018
  12. ALEVE (CAPLET) [Concomitant]
     Indication: ARTHRITIS
     Dosage: UNK, AS NEEDED
     Dates: start: 20040101

REACTIONS (2)
  - DUODENAL ULCER HAEMORRHAGE [None]
  - SYNCOPE [None]
